FAERS Safety Report 9190890 (Version 1)
Quarter: 2013Q1

REPORT INFORMATION
  Report Type: Report from Study
  Country: DE (occurrence: DE)
  Receive Date: 20130326
  Receipt Date: 20130326
  Transmission Date: 20140127
  Serious: Yes (Other)
  Sender: FDA-Public Use
  Company Number: DE-ROCHE-1205145

PATIENT
  Sex: 0

DRUGS (4)
  1. BEVACIZUMAB [Suspect]
     Indication: COLORECTAL CANCER METASTATIC
     Route: 042
  2. CAPECITABINE [Suspect]
     Indication: COLORECTAL CANCER METASTATIC
     Dosage: DAYS 1-14
     Route: 048
  3. OXALIPLATIN [Suspect]
     Indication: COLORECTAL CANCER METASTATIC
     Route: 042
  4. IRINOTECAN [Suspect]
     Indication: COLORECTAL CANCER METASTATIC
     Route: 042

REACTIONS (14)
  - Diarrhoea [Unknown]
  - Peripheral sensory neuropathy [Unknown]
  - Palmar-plantar erythrodysaesthesia syndrome [Unknown]
  - Neutropenia [Unknown]
  - Thrombocytopenia [Unknown]
  - Vomiting [Unknown]
  - Nausea [Unknown]
  - Ileus [Unknown]
  - Thrombosis [Unknown]
  - Hypertension [Unknown]
  - Myocardial ischaemia [Unknown]
  - Gastrointestinal haemorrhage [Unknown]
  - Thrombosis in device [Unknown]
  - Pulmonary embolism [Unknown]
